FAERS Safety Report 10821414 (Version 2)
Quarter: 2015Q1

REPORT INFORMATION
  Report Type: Spontaneous
  Country: US (occurrence: None)
  Receive Date: 20150213
  Receipt Date: 20150219
  Transmission Date: 20150721
  Serious: Yes (Hospitalization, Other)
  Sender: FDA-Public Use
  Company Number: 2015US001121

PATIENT
  Age: 89 Year
  Sex: Male

DRUGS (1)
  1. ELIGARD [Suspect]
     Active Substance: LEUPROLIDE ACETATE
     Indication: PROSTATE CANCER
     Dosage: 45 MG, 6 MONTH DOSE, SUBCUTANEOUS
     Route: 058

REACTIONS (5)
  - Drug dose omission [None]
  - Fall [None]
  - Gait disturbance [None]
  - Incorrect product storage [None]
  - Spinal fracture [None]
